FAERS Safety Report 11296536 (Version 1)
Quarter: 2015Q3

REPORT INFORMATION
  Report Type: Spontaneous
  Country: US (occurrence: US)
  Receive Date: 20150722
  Receipt Date: 20150722
  Transmission Date: 20151125
  Serious: No
  Sender: FDA-Public Use
  Company Number: US-ELI_LILLY_AND_COMPANY-US201004002025

PATIENT
  Age: 55 Year
  Sex: Female

DRUGS (6)
  1. EFFIENT [Suspect]
     Active Substance: PRASUGREL HYDROCHLORIDE
     Indication: ANGIOPLASTY
     Dosage: 60 MG, UNK
  2. VERSED [Concomitant]
     Active Substance: MIDAZOLAM HYDROCHLORIDE
  3. ANGIOMAX [Concomitant]
     Active Substance: BIVALIRUDIN
  4. FENTANYL. [Concomitant]
     Active Substance: FENTANYL
  5. ASA [Concomitant]
     Active Substance: ASPIRIN
  6. EFFIENT [Suspect]
     Active Substance: PRASUGREL HYDROCHLORIDE
     Dosage: 10 MG, DAILY (1/D)

REACTIONS (2)
  - Nausea [Unknown]
  - Vomiting [Unknown]
